FAERS Safety Report 17201014 (Version 2)
Quarter: 2020Q2

REPORT INFORMATION
  Report Type: Spontaneous
  Country: LU (occurrence: LU)
  Receive Date: 20191226
  Receipt Date: 20200528
  Transmission Date: 20200713
  Serious: Yes (Life-Threatening, Other)
  Sender: FDA-Public Use
  Company Number: LU-GLAXOSMITHKLINE-LU2019233035

PATIENT
  Age: 33 Year
  Sex: Male

DRUGS (6)
  1. ULTIVA [Suspect]
     Active Substance: REMIFENTANIL HYDROCHLORIDE
     Indication: GENERAL ANAESTHESIA
     Dosage: 10 ?G, 1 DOSAGE TOTAL
     Route: 042
     Dates: start: 20191118, end: 20191118
  2. XYLOCAINE [Concomitant]
     Active Substance: LIDOCAINE HYDROCHLORIDE
     Indication: GENERAL ANAESTHESIA
     Dosage: 1.17 MG, 1 DOSAGE TOTAL
     Route: 042
     Dates: start: 20191118, end: 20191118
  3. SIMVASTATINE [Concomitant]
     Active Substance: SIMVASTATIN
     Dosage: 20 MG, QD
     Route: 065
  4. SIMVASTATINE [Concomitant]
     Active Substance: SIMVASTATIN
     Indication: DYSLIPIDAEMIA
     Dosage: 20 MG, QD
     Route: 065
  5. CEFUROXIME. [Suspect]
     Active Substance: CEFUROXIME
     Indication: PROPHYLAXIS
     Dosage: 1500 MG, 1 DOSAGE TOTAL
     Route: 042
     Dates: start: 20191118, end: 20191118
  6. PROPOFOL FRESENIUS [Concomitant]
     Active Substance: PROPOFOL
     Indication: GENERAL ANAESTHESIA
     Dosage: 1.17 MG, 1 DOSAGE TOTAL
     Route: 042
     Dates: start: 20191118, end: 20191118

REACTIONS (1)
  - Anaphylactic shock [Recovered/Resolved with Sequelae]

NARRATIVE: CASE EVENT DATE: 20191118
